FAERS Safety Report 12500578 (Version 1)
Quarter: 2016Q2

REPORT INFORMATION
  Report Type: Spontaneous
  Country: US (occurrence: US)
  Receive Date: 20160627
  Receipt Date: 20160627
  Transmission Date: 20160815
  Serious: Yes (Other)
  Sender: FDA-Public Use
  Company Number: US-MYLANLABS-2015M1014449

PATIENT
  Age: 54 Year
  Sex: Male

DRUGS (29)
  1. VISTARIL [Concomitant]
     Active Substance: HYDROXYZINE PAMOATE
     Indication: NAUSEA
  2. METOPROLOL. [Concomitant]
     Active Substance: METOPROLOL
     Dosage: 12.5 MG, QD
     Route: 048
  3. DOCUSATE SODIUM. [Concomitant]
     Active Substance: DOCUSATE SODIUM
     Indication: CONSTIPATION
     Dosage: 100 MG, BID
     Route: 048
  4. DULCOLAX (BISACODYL) [Concomitant]
     Active Substance: BISACODYL
     Indication: CONSTIPATION
     Dosage: 10 MG, QD
     Route: 054
  5. RENVELA [Suspect]
     Active Substance: SEVELAMER CARBONATE
     Dosage: 1600 MG, TID
     Route: 048
  6. CLONAZEPAM. [Concomitant]
     Active Substance: CLONAZEPAM
     Indication: AGITATION
  7. ECONAZOLE [Concomitant]
     Active Substance: ECONAZOLE
     Dosage: UNK, BID (APPLY TO AFFECTED AREAS AND SURROUNDING AREAS OF SKIN
     Route: 061
  8. Q-TUSSIN DM [Concomitant]
     Indication: COUGH
     Dosage: 10 ML, Q4H PRN
     Route: 048
  9. CLOZAPINE. [Suspect]
     Active Substance: CLOZAPINE
     Indication: SCHIZOAFFECTIVE DISORDER
     Dosage: 200 MG, AM
     Route: 048
     Dates: start: 201312
  10. CLOZAPINE. [Suspect]
     Active Substance: CLOZAPINE
     Dosage: 300 MG, PM
     Route: 048
     Dates: start: 201312
  11. PRILOSEC [Concomitant]
     Active Substance: OMEPRAZOLE MAGNESIUM
     Dosage: 40 MG, BID
     Route: 048
  12. RENAGEL [Concomitant]
     Active Substance: SEVELAMER HYDROCHLORIDE
     Dosage: 800 MG, TID
     Route: 048
  13. Q-PAP [Concomitant]
     Active Substance: ACETAMINOPHEN
     Dosage: 975 MG, Q 6 HOURS PRN
     Route: 048
  14. LIDOCAINE PRILOCAINE BIOGARAN [Concomitant]
     Dosage: APPLY SMALL AMOUNT TO LEFT UPPER ARM FISTULA SITE 3/4 HOUR PRIOR TO DIALYSIS
     Route: 061
  15. MIRALAX [Concomitant]
     Active Substance: POLYETHYLENE GLYCOL 3350
     Dosage: 1 PACKET, PRN
     Route: 048
  16. VISTARIL [Concomitant]
     Active Substance: HYDROXYZINE PAMOATE
     Indication: ANXIETY
     Dosage: 25 MG, Q6H, PRN (MAY TAKE TWICE IN 24 HOURS)
     Route: 048
  17. SENNA                              /00142201/ [Concomitant]
     Active Substance: SENNA LEAF
     Indication: CONSTIPATION
     Dosage: 17.2 MG, PRN
     Route: 048
  18. ARTIFICIAL TEARS                   /00222401/ [Concomitant]
     Dosage: 1 GTT, BID AND PRN
  19. LIDOCAINE. [Concomitant]
     Active Substance: LIDOCAINE
     Dosage: UNK, Q 12 HOURS TO LEFT SHOULDER
  20. MILK OF MAGNESIA [Concomitant]
     Active Substance: MAGNESIUM HYDROXIDE
     Dosage: FOR 2 DAYS , IF NO BM FOR 2 DAYS CALL MD30 ML, HS
  21. CLONAZEPAM. [Concomitant]
     Active Substance: CLONAZEPAM
     Dosage: 2 MG, HS
     Route: 048
  22. RENA-VITE [Concomitant]
     Active Substance: ASCORBIC ACID\BIOTIN\CALCIUM PANTOTHENATE\CYANOCOBALAMIN\FOLIC ACID\NIACINAMIDE\PYRIDOXINE HYDROCHLORIDE\RIBOFLAVIN\THIAMINE MONONITRATE
     Dosage: 1 DF, QD
  23. DEPAKOTE [Suspect]
     Active Substance: DIVALPROEX SODIUM
     Dosage: 500 MG, TID (EXTENDED RELEASE)
     Route: 048
     Dates: start: 201312
  24. CLONAZEPAM. [Concomitant]
     Active Substance: CLONAZEPAM
     Indication: ANXIETY
     Dosage: 0.5 MG, PRN (MAX DOSE ONCE/24 HOURS, DO NOT FIVE WITHIN 4 HOURS OF HS DOSE)
     Route: 048
  25. CLONAZEPAM. [Concomitant]
     Active Substance: CLONAZEPAM
     Indication: ANXIETY
     Dosage: 2 MG, HS
     Route: 048
  26. VITAMIN D2 [Concomitant]
     Active Substance: ERGOCALCIFEROL
     Dosage: 50000 UT, BIWEEKLY
     Route: 048
  27. PHENERGAN [Concomitant]
     Active Substance: PROMETHAZINE HYDROCHLORIDE
     Dosage: 12.5 MG, QD
     Route: 054
  28. LOPERAMIDE [Concomitant]
     Active Substance: LOPERAMIDE
     Dosage: 2 MG, Q6H, PRN
     Route: 048
  29. POLYETHYLENE GLYCOL 3350. [Concomitant]
     Active Substance: POLYETHYLENE GLYCOL 3350
     Dosage: UNK
     Route: 048

REACTIONS (2)
  - Constipation [Not Recovered/Not Resolved]
  - Thrombocytopenia [Not Recovered/Not Resolved]

NARRATIVE: CASE EVENT DATE: 201504
